FAERS Safety Report 8432702-4 (Version None)
Quarter: 2012Q2

REPORT INFORMATION
  Report Type: 
  Country: None (occurrence: None)
  Receive Date: 20120323
  Receipt Date: 20110602
  Transmission Date: 20120825
  Serious: Yes (Other)
  Sender: FDA-Public Use
  Company Number: 163-21880-11060556

PATIENT
  Age: 68 Year
  Sex: Male

DRUGS (5)
  1. REVLIMID [Suspect]
     Indication: MULTIPLE MYELOMA
     Dosage: 15;10 MG, 1 IN 1 D,14 DAYS PER CYCLE, PO
     Route: 048
     Dates: start: 20070501
  2. REVLIMID [Suspect]
     Indication: MULTIPLE MYELOMA
     Dosage: 15;10 MG, 1 IN 1 D,14 DAYS PER CYCLE, PO
     Route: 048
     Dates: start: 20070601
  3. REVLIMID [Suspect]
     Indication: MULTIPLE MYELOMA
     Dosage: 15;10 MG, 1 IN 1 D,14 DAYS PER CYCLE, PO
     Route: 048
     Dates: start: 20100701
  4. REVLIMID [Suspect]
  5. VELCADE [Concomitant]

REACTIONS (3)
  - RENAL FAILURE ACUTE [None]
  - NEOPLASM PROGRESSION [None]
  - MULTIPLE MYELOMA [None]
